FAERS Safety Report 6725941-1 (Version None)
Quarter: 2010Q2

REPORT INFORMATION
  Report Type: 
  Country: None (occurrence: None)
  Receive Date: 20100512
  Receipt Date: 20100430
  Transmission Date: 20101027
  Serious: Yes (Hospitalization)
  Sender: FDA-Public Use
  Company Number: 1000013757

PATIENT
  Age: 88 Year
  Sex: Male

DRUGS (5)
  1. ESCITALOPRAM [Suspect]
     Indication: FATIGUE
     Dosage: ORAL
     Route: 048
     Dates: start: 20091201, end: 20100109
  2. ALLOPURINOL [Concomitant]
  3. COZAAR [Concomitant]
  4. BETOLVIDON (TABLETS) [Concomitant]
  5. ASPIRIN [Concomitant]

REACTIONS (4)
  - CONFUSIONAL STATE [None]
  - HALLUCINATION [None]
  - MUSCULAR WEAKNESS [None]
  - OFF LABEL USE [None]
